FAERS Safety Report 16698608 (Version 1)
Quarter: 2019Q3

REPORT INFORMATION
  Report Type: Spontaneous
  Country: US (occurrence: US)
  Receive Date: 20190813
  Receipt Date: 20190813
  Transmission Date: 20191004
  Serious: Yes (Hospitalization)
  Sender: FDA-Public Use
  Company Number: US-TEVA-2019-US-1090583

PATIENT
  Age: 20 Year
  Sex: Male

DRUGS (1)
  1. VALPROIC ACID. [Suspect]
     Active Substance: VALPROIC ACID
     Indication: STATUS EPILEPTICUS
     Route: 065
     Dates: start: 201710

REACTIONS (4)
  - Coagulopathy [Unknown]
  - Acute hepatic failure [Recovered/Resolved]
  - Hepatic steatosis [Recovered/Resolved]
  - Hepatic necrosis [Recovered/Resolved]

NARRATIVE: CASE EVENT DATE: 201801
